FAERS Safety Report 7248245-X (Version None)
Quarter: 2011Q1

REPORT INFORMATION
  Report Type: 
  Country: None (occurrence: None)
  Receive Date: 20110127
  Receipt Date: 20101215
  Transmission Date: 20110831
  Serious: Yes (Hospitalization, Other)
  Sender: FDA-Public Use
  Company Number: US-BAYER-201020707NA

PATIENT
  Sex: Female
  Weight: 100 kg

DRUGS (3)
  1. YAZ [Suspect]
     Indication: MENSTRUAL CYCLE MANAGEMENT
     Dosage: UNK UNK, UNK
     Route: 048
     Dates: start: 20070101
  2. SEPTRA [Concomitant]
     Indication: URINARY TRACT INFECTION
  3. YASMIN [Suspect]
     Indication: MENSTRUAL CYCLE MANAGEMENT
     Dosage: UNK
     Dates: start: 20070104, end: 20070301

REACTIONS (2)
  - PULMONARY EMBOLISM [None]
  - DYSPNOEA [None]
